FAERS Safety Report 6323185-9 (Version None)
Quarter: 2009Q3

REPORT INFORMATION
  Report Type: 
  Country: None (occurrence: None)
  Receive Date: 20090824
  Receipt Date: 20090401
  Transmission Date: 20100115
  Serious: No
  Sender: FDA-Public Use
  Company Number: US-ABBOTT-09P-163-0566119-00

PATIENT
  Sex: Male
  Weight: 108.96 kg

DRUGS (15)
  1. NIASPAN [Suspect]
     Indication: BLOOD TRIGLYCERIDES INCREASED
     Route: 048
     Dates: start: 19980101
  2. VERELAN [Concomitant]
     Indication: VASOSPASM
  3. SOTALOL HYDROCHLORIDE [Concomitant]
     Indication: VENTRICULAR TACHYCARDIA
     Route: 048
  4. LISINOPRIL [Concomitant]
     Indication: CARDIAC FAILURE CONGESTIVE
     Route: 048
  5. FINESTARIDE [Concomitant]
     Indication: BENIGN PROSTATIC HYPERPLASIA
     Route: 048
  6. FINESTARIDE [Concomitant]
     Indication: ALOPECIA
  7. NITRO PADS [Concomitant]
     Indication: VASOSPASM
     Dosage: 10TH OF A MG
     Route: 061
  8. SINGULAIR [Concomitant]
     Indication: HYPERSENSITIVITY
     Route: 048
  9. SINGULAIR [Concomitant]
     Indication: MUSCLE RELAXANT THERAPY
  10. CRESTOR [Concomitant]
     Indication: BLOOD CHOLESTEROL INCREASED
     Route: 048
     Dates: start: 20081201
  11. CO Q10 [Concomitant]
     Indication: NEUROPATHY PERIPHERAL
     Route: 048
  12. FISH OIL [Concomitant]
     Indication: MEDICAL DIET
     Route: 048
  13. ZYRTEC [Concomitant]
     Indication: HYPERSENSITIVITY
     Dosage: UNKNOWN
     Route: 048
  14. COUMADIN [Concomitant]
     Indication: ARRHYTHMIA
     Route: 048
     Dates: start: 20081230
  15. COUMADIN [Concomitant]
     Route: 048
     Dates: start: 20081230

REACTIONS (1)
  - FLUSHING [None]
